FAERS Safety Report 7205423-3 (Version None)
Quarter: 2010Q4

REPORT INFORMATION
  Report Type: 
  Country: None (occurrence: None)
  Receive Date: 20101231
  Receipt Date: 20101220
  Transmission Date: 20110411
  Serious: Yes (Hospitalization)
  Sender: FDA-Public Use
  Company Number: PHHY2010DE72516

PATIENT
  Sex: Male
  Weight: 78 kg

DRUGS (7)
  1. ZOMETA [Suspect]
     Indication: OSTEOLYSIS
     Dosage: 3 MG EVERY 4 WEEKS
     Route: 042
     Dates: start: 20100902, end: 20100930
  2. CO-DIOVAN [Concomitant]
     Indication: HYPERTENSION
     Dosage: 160MG/12.5MG
     Route: 048
  3. TRAMAL [Concomitant]
     Dosage: 100 MG, QD
     Route: 048
     Dates: start: 20100601
  4. IBUPROFEN [Concomitant]
     Indication: BACK PAIN
     Dosage: 600 MG, BID
     Route: 048
  5. PANTOZOL [Concomitant]
     Indication: GASTRITIS PROPHYLAXIS
     Dosage: 20 MG, QD
     Route: 048
     Dates: start: 20100601
  6. ALLOPURINOL [Concomitant]
     Dosage: 300 MG, QD
     Route: 048
  7. CALCILAC KT [Concomitant]
     Dosage: UNK

REACTIONS (9)
  - BONE DISORDER [None]
  - BONE LESION [None]
  - OSTEOMYELITIS [None]
  - OSTEONECROSIS OF JAW [None]
  - PAIN [None]
  - SOFT TISSUE INFECTION [None]
  - STOMATITIS [None]
  - SURGERY [None]
  - SWELLING [None]
